FAERS Safety Report 11889270 (Version 1)
Quarter: 2016Q1

REPORT INFORMATION
  Report Type: Spontaneous
  Country: US (occurrence: None)
  Receive Date: 20160104
  Receipt Date: 20160104
  Transmission Date: 20160526
  Serious: Yes (Hospitalization)
  Sender: FDA-Public Use
  Company Number: None

PATIENT
  Age: 14 Year
  Sex: Female

DRUGS (7)
  1. EXJADE [Suspect]
     Active Substance: DEFERASIROX
     Indication: IRON OVERLOAD
     Dosage: 2 TABLETS  QD  ORAL
     Route: 048
  2. CUVPOSA [Concomitant]
     Active Substance: GLYCOPYRROLATE
  3. LISINOPRIL. [Concomitant]
     Active Substance: LISINOPRIL
  4. ZANTAC [Concomitant]
     Active Substance: RANITIDINE HYDROCHLORIDE
  5. PHENOBARBITAL. [Concomitant]
     Active Substance: PHENOBARBITAL
  6. DIAZEPAM. [Concomitant]
     Active Substance: DIAZEPAM
  7. TYLENOL [Concomitant]
     Active Substance: ACETAMINOPHEN

REACTIONS (2)
  - Viral infection [None]
  - Dyspnoea [None]

NARRATIVE: CASE EVENT DATE: 20151229
